FAERS Safety Report 20384463 (Version 1)
Quarter: 2022Q1

REPORT INFORMATION
  Report Type: Spontaneous
  Country: US (occurrence: None)
  Receive Date: 20220127
  Receipt Date: 20220127
  Transmission Date: 20220423
  Serious: Yes (Other)
  Sender: FDA-Public Use
  Company Number: None

PATIENT
  Age: 79 Year
  Sex: Male

DRUGS (1)
  1. CALCIPOTRIENE\FLUOROURACIL [Suspect]
     Active Substance: CALCIPOTRIENE\FLUOROURACIL
     Indication: Actinic keratosis
     Dosage: FREQUENCY : TWICE A DAY;?
     Route: 061
     Dates: start: 20211209, end: 20211211

REACTIONS (5)
  - Blister [None]
  - Eye swelling [None]
  - Swelling face [None]
  - Lip swelling [None]
  - Swelling face [None]

NARRATIVE: CASE EVENT DATE: 20211209
